FAERS Safety Report 7633774-7 (Version None)
Quarter: 2011Q3

REPORT INFORMATION
  Report Type: 
  Country: None (occurrence: None)
  Receive Date: 20110718
  Receipt Date: 20110708
  Transmission Date: 20111222
  Serious: Yes (Other)
  Sender: FDA-Public Use
  Company Number: ACO_25762_2011

PATIENT
  Age: 28 Year
  Sex: Female

DRUGS (12)
  1. WELLBUTRIN [Concomitant]
  2. MUSCLE RELAXANTS [Concomitant]
  3. GARLIC (ALLIUM SATIVUM) [Concomitant]
  4. PRENATAL VITAMINS (ASCORBIC ACID, BIOTIN, MINERALS NOS, NICOTINIC ACID [Concomitant]
  5. FISH OIL (FISH OIL) [Concomitant]
  6. PROVIGIL [Concomitant]
  7. HYPNOTICS AND SEDATIVES [Concomitant]
  8. AMPYRA [Suspect]
     Indication: GAIT DISTURBANCE
     Dosage: 10 MG, ORAL
     Route: 048
     Dates: start: 20110609, end: 20110623
  9. AMANTADINE HCL [Concomitant]
  10. CALCIUM (CALCIUM) [Concomitant]
  11. ACETAMINOPHEN [Concomitant]
  12. TYSABRI [Concomitant]

REACTIONS (4)
  - FALL [None]
  - DIZZINESS [None]
  - CONVULSION [None]
  - EYE INJURY [None]
